FAERS Safety Report 5040010-7 (Version None)
Quarter: 2006Q2

REPORT INFORMATION
  Report Type: 
  Country: None (occurrence: None)
  Receive Date: 20060601
  Receipt Date: 20060106
  Transmission Date: 20061013
  Serious: No
  Sender: FDA-Public Use
  Company Number: 2006PV006711

PATIENT
  Age: 61 Year
  Sex: Female
  Weight: 90.7194 kg

DRUGS (5)
  1. BYETTA [Suspect]
     Indication: DIABETES MELLITUS NON-INSULIN-DEPENDENT
     Dosage: 5 MCG, BID, SC
     Route: 058
     Dates: start: 20051223
  2. AMARYL [Concomitant]
  3. NOVOLIN 70/30 [Concomitant]
  4. CHLORTHALIDONE [Concomitant]
  5. QUINAPRIL [Concomitant]

REACTIONS (2)
  - DECREASED APPETITE [None]
  - PALPITATIONS [None]
